FAERS Safety Report 7535186-3 (Version None)
Quarter: 2011Q2

REPORT INFORMATION
  Report Type: 
  Country: None (occurrence: None)
  Receive Date: 20110609
  Receipt Date: 20090327
  Transmission Date: 20111010
  Serious: Yes (Hospitalization, Other)
  Sender: FDA-Public Use
  Company Number: PHHY2009JP08121

PATIENT
  Sex: Female

DRUGS (27)
  1. VAGOSTIGMIN #1 [Concomitant]
     Dosage: 1 AD
     Route: 042
     Dates: start: 20080707, end: 20080708
  2. CEFAMEZIN ^FUJISAWA^ [Concomitant]
     Dosage: 3 G
     Route: 054
     Dates: start: 20080707
  3. BEZATOL - SLOW RELEASE [Concomitant]
     Dosage: 400 MG
     Route: 048
     Dates: start: 20081216
  4. FRANDOL [Concomitant]
     Dosage: 80 MG
     Route: 062
     Dates: start: 20080703
  5. AMLODIPINE [Concomitant]
     Indication: HYPERTENSION
     Dosage: 5 MG
     Route: 048
     Dates: start: 20071109, end: 20080707
  6. MORPHINE HCL ELIXIR [Concomitant]
     Dosage: 1 ML
     Dates: start: 20080707, end: 20080707
  7. FENTANYL [Concomitant]
     Dosage: 5 UNK
     Route: 042
     Dates: start: 20080707, end: 20080707
  8. ALBUMINAR [Concomitant]
     Dosage: 6 DF
     Route: 054
     Dates: start: 20080707, end: 20080707
  9. CEFAMEZIN ^FUJISAWA^ [Concomitant]
     Dosage: 2 G, UNK
     Route: 054
     Dates: end: 20080711
  10. AMIKAMYCIN [Concomitant]
     Dosage: 1 MG
     Route: 048
     Dates: start: 20080710, end: 20080716
  11. ASPIRIN [Concomitant]
     Dosage: 100 MG
     Route: 048
     Dates: start: 20080216, end: 20080619
  12. VALSARTAN [Suspect]
     Dosage: 80 MG, QD
     Route: 048
     Dates: start: 20070122
  13. HEPARIN CALCIUM [Concomitant]
     Dosage: 0.6 ML, UNK
     Route: 058
     Dates: start: 20080702, end: 20080707
  14. VANCOMYCIN [Concomitant]
     Dosage: 1 G
     Route: 054
     Dates: start: 20080707, end: 20080707
  15. VECURONIUM BROMIDE [Concomitant]
     Dosage: 5 UNK
     Route: 042
     Dates: start: 20080707, end: 20080707
  16. INOVAN [Concomitant]
     Dosage: 1 DF
     Route: 054
     Dates: start: 20080707, end: 20080707
  17. ATROPINE SULFATE [Concomitant]
     Dosage: 2 DF
     Route: 042
     Dates: start: 20080707, end: 20080708
  18. LOXONIN [Concomitant]
     Dosage: 60 MG
     Route: 048
     Dates: start: 20080710, end: 20080720
  19. HEPARIN CALCIUM [Concomitant]
     Dosage: 0.3 ML
     Route: 058
     Dates: start: 20080701, end: 20080701
  20. NOVOLIN R [Concomitant]
     Dosage: 50 IU
     Dates: start: 20080707, end: 20080707
  21. WARFARIN SODIUM [Concomitant]
     Dosage: 1 MG
     Route: 048
     Dates: start: 20070810
  22. OZEX [Concomitant]
     Dosage: 300 MG
     Route: 048
     Dates: start: 20080716, end: 20080719
  23. RADISTIM [Concomitant]
     Dosage: 3 DF
     Route: 054
     Dates: start: 20080707, end: 20080708
  24. PANTOL [Concomitant]
     Dosage: 2 DF
     Route: 054
     Dates: start: 20080709, end: 20080715
  25. CARTEOLOL HYDROCHLORIDE [Concomitant]
     Dosage: 50 ML
     Dates: start: 20080707, end: 20080707
  26. LASIX [Concomitant]
     Route: 048
     Dates: start: 20070625
  27. WARFARIN POTASSIUM [Concomitant]
     Dosage: 0.5 MG
     Route: 048
     Dates: start: 20070825, end: 20080716

REACTIONS (1)
  - AORTIC ANEURYSM [None]
